FAERS Safety Report 7365422-8 (Version None)
Quarter: 2011Q1

REPORT INFORMATION
  Report Type: 
  Country: None (occurrence: None)
  Receive Date: 20110310
  Receipt Date: 20110216
  Transmission Date: 20110831
  Serious: Yes (Other)
  Sender: FDA-Public Use
  Company Number: JP-20110008

PATIENT
  Age: 77 Year
  Sex: Male

DRUGS (1)
  1. (LIPIODOL ULTRA FLUIDE) (ETHIODIZED OIL) [Suspect]
     Indication: THERAPEUTIC EMBOLISATION
     Dosage: INTRA-ARTERIAL
     Route: 013

REACTIONS (3)
  - CEREBRAL ARTERY EMBOLISM [None]
  - POSTERIOR REVERSIBLE ENCEPHALOPATHY SYNDROME [None]
  - OFF LABEL USE [None]
